FAERS Safety Report 5671304-X (Version None)
Quarter: 2008Q1

REPORT INFORMATION
  Report Type: 
  Country: None (occurrence: None)
  Receive Date: 20080318
  Receipt Date: 20080313
  Transmission Date: 20080703
  Serious: Yes (Other)
  Sender: FDA-Public Use
  Company Number: BR-BRISTOL-MYERS SQUIBB COMPANY-14117964

PATIENT
  Age: 13 Year
  Sex: Male

DRUGS (3)
  1. REYATAZ [Suspect]
     Indication: HIV INFECTION
     Route: 048
  2. LOPINAVIR [Concomitant]
  3. LAMIVUDINE [Concomitant]

REACTIONS (3)
  - DYSPEPSIA [None]
  - JAUNDICE [None]
  - URTICARIA [None]
